FAERS Safety Report 5333876-4 (Version None)
Quarter: 2007Q2

REPORT INFORMATION
  Report Type: 
  Country: None (occurrence: None)
  Receive Date: 20070524
  Receipt Date: 20070514
  Transmission Date: 20071010
  Serious: Yes (Other)
  Sender: FDA-Public Use
  Company Number: US-SHR-US-2006-012768

PATIENT
  Age: 51 Year
  Sex: Female

DRUGS (5)
  1. BETASERON [Suspect]
     Indication: MULTIPLE SCLEROSIS
     Dosage: 4 MIU, EVERY 2D
     Route: 058
     Dates: start: 20060425
  2. BETASERON [Suspect]
     Dosage: 8 MIU, EVERY 2D
     Route: 058
     Dates: end: 20070305
  3. AMBIEN [Concomitant]
     Indication: INSOMNIA
  4. UNSPECIFIED THYROID DRUG [Concomitant]
     Indication: THYROID FUNCTION TEST ABNORMAL
  5. COPAXONE [Concomitant]
     Dosage: UNK, 1X/DAY

REACTIONS (7)
  - BLOOD GLUCOSE INCREASED [None]
  - GOITRE [None]
  - INFLUENZA LIKE ILLNESS [None]
  - INJECTION SITE REACTION [None]
  - MULTIPLE SCLEROSIS [None]
  - THYROID FUNCTION TEST ABNORMAL [None]
  - THYROIDITIS [None]
